FAERS Safety Report 8813744 (Version 2)
Quarter: 2015Q2

REPORT INFORMATION
  Report Type: Report from Study
  Country: US (occurrence: US)
  Receive Date: 20120928
  Receipt Date: 20150624
  Transmission Date: 20150821
  Serious: Yes (Death, Hospitalization)
  Sender: FDA-Public Use
  Company Number: US-ROCHE-1123800

PATIENT
  Age: 80 Year
  Sex: Male

DRUGS (13)
  1. TAXOTERE [Concomitant]
     Active Substance: DOCETAXEL
     Route: 042
  2. TAXOTERE [Concomitant]
     Active Substance: DOCETAXEL
     Route: 042
  3. BENADRYL [Concomitant]
     Active Substance: DIPHENHYDRAMINE HYDROCHLORIDE
     Route: 042
  4. KYTRIL [Concomitant]
     Active Substance: GRANISETRON HYDROCHLORIDE
     Route: 065
  5. NEULASTA [Concomitant]
     Active Substance: PEGFILGRASTIM
     Route: 065
  6. ZOMETA [Concomitant]
     Active Substance: ZOLEDRONIC ACID
     Route: 042
  7. HERCEPTIN [Suspect]
     Active Substance: TRASTUZUMAB
     Indication: PROSTATE CANCER
     Route: 042
     Dates: start: 20040114
  8. ARANESP [Concomitant]
     Active Substance: DARBEPOETIN ALFA
     Route: 058
  9. ESTRAMUSTINE [Concomitant]
     Active Substance: ESTRAMUSTINE
     Route: 048
  10. AREDIA [Concomitant]
     Active Substance: PAMIDRONATE DISODIUM
  11. DECADRON [Concomitant]
     Active Substance: DEXAMETHASONE
     Route: 042
  12. DECADRON [Concomitant]
     Active Substance: DEXAMETHASONE
     Route: 042
  13. ANZEMET [Concomitant]
     Active Substance: DOLASETRON MESYLATE
     Route: 042

REACTIONS (5)
  - Osteoporotic fracture [Recovered/Resolved]
  - Off label use [Unknown]
  - Death [Fatal]
  - Oedema peripheral [Unknown]
  - Peripheral swelling [Recovering/Resolving]

NARRATIVE: CASE EVENT DATE: 20060325
